FAERS Safety Report 20125779 (Version 1)
Quarter: 2021Q4

REPORT INFORMATION
  Report Type: Other
  Country: IL (occurrence: None)
  Receive Date: 20211129
  Receipt Date: 20211129
  Transmission Date: 20220303
  Serious: Yes (Other)
  Sender: FDA-Public Use
  Company Number: IL-ROCHE-2960225

PATIENT
  Sex: Male

DRUGS (8)
  1. OCREVUS [Suspect]
     Active Substance: OCRELIZUMAB
     Indication: Relapsing multiple sclerosis
     Dosage: MORE DOSAGE INFORMATION IS 600MG Q6M
     Route: 042
     Dates: start: 20181223
  2. BISOPROLOL FUMARATE [Concomitant]
     Active Substance: BISOPROLOL FUMARATE
  3. NUVIGIL [Concomitant]
     Active Substance: ARMODAFINIL
  4. BACLOFEN [Concomitant]
     Active Substance: BACLOFEN
  5. METHIMAZOLE [Concomitant]
     Active Substance: METHIMAZOLE
  6. LORAZEPAM [Concomitant]
     Active Substance: LORAZEPAM
  7. BROTIZOLAM [Concomitant]
     Active Substance: BROTIZOLAM
  8. MIRABEGRON [Concomitant]
     Active Substance: MIRABEGRON

REACTIONS (1)
  - Multiple sclerosis [Not Recovered/Not Resolved]
